FAERS Safety Report 4496722-7 (Version None)
Quarter: 2004Q4

REPORT INFORMATION
  Report Type: 
  Country: None (occurrence: None)
  Receive Date: 20041109
  Receipt Date: 20041029
  Transmission Date: 20050328
  Serious: Yes (Death)
  Sender: FDA-Public Use
  Company Number: JP-BRISTOL-MYERS SQUIBB COMPANY-12758033

PATIENT
  Age: 46 Year
  Sex: Male

DRUGS (3)
  1. IFOMIDE [Suspect]
     Indication: SYNOVIAL SARCOMA
     Route: 041
     Dates: start: 20041019, end: 20041022
  2. ADRIACIN [Suspect]
     Indication: SYNOVIAL SARCOMA
     Route: 041
     Dates: start: 20041020, end: 20041022
  3. INSULIN [Concomitant]
     Indication: DIABETES MELLITUS
     Route: 058
     Dates: start: 20041021, end: 20041023

REACTIONS (2)
  - CARDIOMYOPATHY [None]
  - FEELING ABNORMAL [None]
